FAERS Safety Report 7954867-0 (Version None)
Quarter: 2011Q4

REPORT INFORMATION
  Report Type: 
  Country: None (occurrence: None)
  Receive Date: 20111202
  Receipt Date: 20111130
  Transmission Date: 20120403
  Serious: Yes (Hospitalization, Other)
  Sender: FDA-Public Use
  Company Number: US-BAYER-2011-115118

PATIENT
  Age: 50 Year
  Sex: Female

DRUGS (1)
  1. BETASERON [Suspect]
     Indication: MULTIPLE SCLEROSIS
     Dosage: 8 MIU EVERY OTHER DAY WITH BETAJECT
     Route: 058
     Dates: start: 19960212

REACTIONS (1)
  - CEREBROVASCULAR ACCIDENT [None]
